FAERS Safety Report 9931289 (Version 1)
Quarter: 2014Q1

REPORT INFORMATION
  Report Type: Report from Study
  Country: FR (occurrence: FR)
  Receive Date: 20140228
  Receipt Date: 20140228
  Transmission Date: 20141002
  Serious: Yes (Other)
  Sender: FDA-Public Use
  Company Number: FR-ROCHE-1355525

PATIENT
  Sex: Female

DRUGS (2)
  1. OSELTAMIVIR [Suspect]
     Indication: ANTIVIRAL TREATMENT
     Route: 065
  2. FOLIC ACID [Concomitant]

REACTIONS (5)
  - Pre-eclampsia [Unknown]
  - Gestational diabetes [Unknown]
  - Gestational hypertension [Unknown]
  - Premature delivery [Unknown]
  - Maternal exposure during pregnancy [Unknown]
